FAERS Safety Report 17673466 (Version 1)
Quarter: 2020Q2

REPORT INFORMATION
  Report Type: Spontaneous
  Country: ES (occurrence: ES)
  Receive Date: 20200415
  Receipt Date: 20200415
  Transmission Date: 20200713
  Serious: Yes (Other)
  Sender: FDA-Public Use
  Company Number: ES-009507513-1409ESP000645

PATIENT

DRUGS (1)
  1. SIMVASTATIN. [Suspect]
     Active Substance: SIMVASTATIN

REACTIONS (3)
  - Autoimmune hepatitis [Recovered/Resolved]
  - Hepatic necrosis [Recovered/Resolved]
  - Drug-induced liver injury [Recovered/Resolved]
